FAERS Safety Report 11239182 (Version 1)
Quarter: 2015Q3

REPORT INFORMATION
  Report Type: Spontaneous
  Country: US (occurrence: None)
  Receive Date: 20150701
  Receipt Date: 20150701
  Transmission Date: 20151125
  Serious: Yes (Hospitalization, Other)
  Sender: FDA-Public Use
  Company Number: US-ZYDUS-008550

PATIENT
  Age: 14 Year
  Sex: Female

DRUGS (1)
  1. OXYCODONE HCL [Suspect]
     Active Substance: OXYCODONE HYDROCHLORIDE
     Dosage: 5.00-MG-

REACTIONS (15)
  - Unresponsive to stimuli [None]
  - Pulse absent [None]
  - Mental status changes [None]
  - Akathisia [None]
  - Movement disorder [None]
  - Apnoea [None]
  - Heart rate increased [None]
  - Blood pressure increased [None]
  - Abasia [None]
  - Respiratory disorder [None]
  - Cognitive disorder [None]
  - Toxic encephalopathy [None]
  - Sleep disorder [None]
  - Dysstasia [None]
  - Overdose [None]
